FAERS Safety Report 7660164-3 (Version None)
Quarter: 2011Q3

REPORT INFORMATION
  Report Type: 
  Country: None (occurrence: None)
  Receive Date: 20110805
  Receipt Date: 20110728
  Transmission Date: 20111222
  Serious: Yes (Other)
  Sender: FDA-Public Use
  Company Number: PHHY2011AU46063

PATIENT
  Sex: Female

DRUGS (6)
  1. LEVOTHYROXINE SODIUM [Concomitant]
     Dosage: 100 UG, QD
  2. DRENCHOL [Concomitant]
  3. ZOLEDRONOC ACID [Suspect]
     Dosage: 5 MG, UNK
     Route: 042
     Dates: start: 20100330
  4. TEMAZEPAM [Concomitant]
  5. SOMEC [Concomitant]
  6. PROCHLORPERAZINE [Concomitant]

REACTIONS (4)
  - BONE PAIN [None]
  - CHILLS [None]
  - BONE DENSITY DECREASED [None]
  - MOVEMENT DISORDER [None]
